FAERS Safety Report 8767725 (Version 1)
Quarter: 2012Q4

REPORT INFORMATION
  Report Type: 
  Country: US (occurrence: US)
  Receive Date: 20120904
  Receipt Date: 20120904
  Transmission Date: 20130627
  Serious: No
  Sender: FDA-Public Use
  Company Number: US-AMGEN-USASP2012052802

PATIENT
  Age: 59 Year
  Sex: Female

DRUGS (3)
  1. ARAVA [Concomitant]
     Dosage: UNK
  2. ENBREL [Suspect]
     Indication: RHEUMATOID ARTHRITIS
     Dosage: 50 mg, qwk
     Route: 058
  3. CELEBREX [Concomitant]
     Dosage: UNK

REACTIONS (12)
  - Weight decreased [Not Recovered/Not Resolved]
  - Injury [Recovered/Resolved]
  - Impaired healing [Recovered/Resolved]
  - Abdominal discomfort [Not Recovered/Not Resolved]
  - Therapeutic response decreased [Not Recovered/Not Resolved]
  - Dyspnoea [Recovered/Resolved]
  - Injection site bruising [Not Recovered/Not Resolved]
  - Injection site pain [Not Recovered/Not Resolved]
  - Injection site erythema [Not Recovered/Not Resolved]
  - Injection site warmth [Not Recovered/Not Resolved]
  - Urticaria [Recovered/Resolved]
  - Pruritus [Recovered/Resolved]
